FAERS Safety Report 5150741-6 (Version None)
Quarter: 2006Q4

REPORT INFORMATION
  Report Type: 
  Country: None (occurrence: None)
  Receive Date: 20061108
  Receipt Date: 20061026
  Transmission Date: 20070319
  Serious: Yes (Other)
  Sender: FDA-Public Use
  Company Number: 2006134925

PATIENT
  Age: 62 Year
  Sex: Female

DRUGS (1)
  1. VFEND [Suspect]
     Dosage: 200 MG, ORAL
     Route: 048
     Dates: start: 20060923

REACTIONS (2)
  - GENERALISED OEDEMA [None]
  - STOMATITIS [None]
